FAERS Safety Report 7578301-8 (Version None)
Quarter: 2011Q2

REPORT INFORMATION
  Report Type: 
  Country: None (occurrence: None)
  Receive Date: 20110628
  Receipt Date: 20110415
  Transmission Date: 20111010
  Serious: Yes (Hospitalization, Other)
  Sender: FDA-Public Use
  Company Number: US-BAYER-2010-001729

PATIENT
  Age: 49 Year
  Sex: Female
  Weight: 63.492 kg

DRUGS (31)
  1. DIFLUCAN [Concomitant]
     Dosage: 150 MG, UNK
     Dates: start: 20090320
  2. PERCOCET [Concomitant]
     Dosage: 325 MG, QID
     Route: 048
     Dates: start: 20090327
  3. ALEVE [Concomitant]
     Dosage: UNK
     Route: 048
     Dates: start: 20090401
  4. LIDODERM [Concomitant]
     Dosage: 5 %, UNK
     Route: 062
     Dates: start: 20090414
  5. CITALOPRAM HYDROBROMIDE [Concomitant]
     Dosage: 40 MG, QD
  6. TYLENOL-500 [Concomitant]
     Dosage: 1000 MG, QID
     Dates: start: 20090323
  7. ZANAFLEX [Concomitant]
     Dosage: 2 MG, HS
     Route: 048
     Dates: start: 20090401
  8. DEPO-MEDROL [Concomitant]
     Dosage: UNK
     Dates: start: 20090403, end: 20090403
  9. FLONASE [Concomitant]
     Dosage: UNK
     Route: 045
     Dates: start: 20090607
  10. FERROUS GLUCONATE [Concomitant]
     Dosage: 325 MG, BID
  11. IBUPROFEN [Concomitant]
     Dosage: 600 MG, TID
     Route: 048
     Dates: start: 20080801, end: 20090327
  12. TORADOL [Concomitant]
     Dosage: 60 MG, ONCE
     Route: 030
     Dates: start: 20090323
  13. MONISTAT [Concomitant]
     Dosage: UNK
     Dates: start: 20090323
  14. LYRICA [Concomitant]
     Dosage: 50 MG, TID
     Route: 048
     Dates: start: 20090401
  15. BUPIVACAINE HCL [Concomitant]
     Dosage: UNK
     Dates: start: 20090403, end: 20090403
  16. CETIRIZINE HCL [Concomitant]
     Dosage: 10 MG, QD
  17. OMEPRAZOLE [Concomitant]
     Dosage: 20 MG, QD
  18. YAZ [Suspect]
     Indication: MENORRHAGIA
     Dosage: UNK
     Dates: start: 20090501, end: 20090612
  19. CELEXA [Concomitant]
     Dosage: 40 MG, QD
     Route: 048
     Dates: start: 20060101
  20. TRAMADOL HCL [Concomitant]
     Dosage: 50 MG, QID
     Route: 048
     Dates: start: 20090323
  21. KETOROLAC TROMETHAMINE [Concomitant]
     Dosage: 10 MG, TID
     Route: 048
     Dates: start: 20090403
  22. ZITHROMAX [Concomitant]
     Dosage: UNK
     Dates: start: 20090605
  23. ZOLPIDEM [Concomitant]
     Dosage: 5 MG, HS
  24. AUGMENTIN '125' [Concomitant]
     Dosage: 875 MG, UNK
     Dates: start: 20090317
  25. YASMIN [Suspect]
     Indication: PRODUCT USED FOR UNKNOWN INDICATION
     Dosage: UNK
     Dates: start: 20090501, end: 20090901
  26. VICODIN [Concomitant]
     Dosage: UNK UNK, QID
     Route: 048
     Dates: start: 20081209, end: 20090327
  27. INDOMETHACIN [Concomitant]
     Dosage: 50 MG, TID
     Route: 048
     Dates: start: 20090327
  28. CETIRIZINE HCL [Concomitant]
     Dosage: UNK
     Route: 048
     Dates: start: 20090607
  29. VITAMIN B12 NOS [Concomitant]
     Dosage: UNK
     Dates: start: 20090601
  30. AMBIEN [Concomitant]
     Dosage: 5 MG, HS
     Route: 048
     Dates: start: 20050101
  31. BACTRIM DS [Concomitant]
     Dosage: UNK UNK, TID
     Dates: start: 20090323

REACTIONS (5)
  - PAIN [None]
  - PORTAL VEIN THROMBOSIS [None]
  - LIVER INJURY [None]
  - ABDOMINAL PAIN [None]
  - HAEMORRHAGE [None]
